FAERS Safety Report 5339837-3 (Version None)
Quarter: 2007Q2

REPORT INFORMATION
  Report Type: 
  Country: None (occurrence: None)
  Receive Date: 20070405
  Receipt Date: 20061102
  Transmission Date: 20071010
  Serious: No
  Sender: FDA-Public Use
  Company Number: US200611000676

PATIENT
  Age: 63 Year
  Sex: Female

DRUGS (4)
  1. CYMBALTA [Suspect]
     Indication: FIBROMYALGIA
     Dosage: 30 MG, ORAL
     Route: 048
     Dates: start: 20061001, end: 20061001
  2. AMBIEN [Concomitant]
  3. CELEXA [Concomitant]
  4. SINEQUAN [Concomitant]

REACTIONS (2)
  - HEART RATE INCREASED [None]
  - PLATELET COUNT DECREASED [None]
